FAERS Safety Report 19724560 (Version 3)
Quarter: 2021Q3

REPORT INFORMATION
  Report Type: Report from Study
  Country: DE (occurrence: DE)
  Receive Date: 20210819
  Receipt Date: 20210927
  Transmission Date: 20211014
  Serious: Yes (Other)
  Sender: FDA-Public Use
  Company Number: DE-PFIZER INC-2021078002

PATIENT
  Age: 57 Year
  Sex: Female
  Weight: 59 kg

DRUGS (26)
  1. DOCETAXEL. [Suspect]
     Active Substance: DOCETAXEL
     Dosage: 118 MG
     Route: 065
     Dates: start: 20210104
  2. PERTUZUMAB. [Suspect]
     Active Substance: PERTUZUMAB
     Dosage: 420 MG
     Route: 042
     Dates: start: 20210104
  3. DEXAMETHASONE. [Concomitant]
     Active Substance: DEXAMETHASONE
     Dosage: 8 MG
     Route: 042
     Dates: start: 20201118, end: 20210104
  4. TRASTUZUMAB. [Suspect]
     Active Substance: TRASTUZUMAB
     Dosage: 336 MG
     Dates: start: 20210125, end: 20210328
  5. PERTUZUMAB. [Suspect]
     Active Substance: PERTUZUMAB
     Dosage: 420 MG
     Route: 065
     Dates: start: 20210518
  6. BISOPROLOL [Concomitant]
     Active Substance: BISOPROLOL
     Dosage: 2.5 MG
     Route: 048
     Dates: start: 20210709
  7. DOCETAXEL. [Suspect]
     Active Substance: DOCETAXEL
     Dosage: 120 MG
     Route: 065
     Dates: start: 20201118, end: 20210104
  8. TRASTUZUMAB. [Suspect]
     Active Substance: TRASTUZUMAB
     Dosage: 336 MG
     Route: 041
     Dates: start: 20210518
  9. PERTUZUMAB. [Suspect]
     Active Substance: PERTUZUMAB
     Indication: BREAST CANCER
     Dosage: 420 MG
     Route: 042
     Dates: start: 20201210, end: 20210328
  10. DEXAMETHASONE. [Concomitant]
     Active Substance: DEXAMETHASONE
     Dosage: 32 MG
     Route: 048
     Dates: start: 20201117, end: 20210106
  11. GYNOMUNAL [CHOLESTEROL;HUMULUS LUPULUS;HYALURONIC ACID;TOCOPHERYL ACET [Concomitant]
     Route: 061
     Dates: start: 20210208, end: 20210222
  12. HISTAKUT [Concomitant]
     Active Substance: DIMETHINDENE MALEATE
     Dosage: 4 MG
     Route: 042
     Dates: start: 20201118, end: 20210104
  13. DOCETAXEL. [Suspect]
     Active Substance: DOCETAXEL
     Indication: BREAST CANCER
     Dosage: 118 MG
     Route: 065
     Dates: start: 20201210
  14. TRASTUZUMAB. [Suspect]
     Active Substance: TRASTUZUMAB
     Dosage: 336 MG
     Route: 041
     Dates: start: 20210104
  15. PERTUZUMAB. [Suspect]
     Active Substance: PERTUZUMAB
     Dosage: 420 MG
     Dates: start: 20210125, end: 20210328
  16. CALCIMAGON D3 [Concomitant]
     Active Substance: CALCIUM\CHOLECALCIFEROL
     Dosage: CALCIUM 500 MG / VITAMIN D 400 IU DAILY
     Route: 048
     Dates: start: 20201118
  17. CALCIMAGON D3 [Concomitant]
     Active Substance: CALCIUM\CHOLECALCIFEROL
     Dosage: 400 IU
     Route: 048
     Dates: start: 20201118
  18. ZOLEDRONIC ACID [Suspect]
     Active Substance: ZOLEDRONIC ACID
     Dosage: 4MG,  EVERY 4 WEEKS
     Dates: start: 20201216
  19. ZOLEDRONIC ACID [Suspect]
     Active Substance: ZOLEDRONIC ACID
     Dosage: UNK
     Dates: start: 20210113
  20. NOVALGIN (METAMIZOLE SODIUM) [Concomitant]
     Active Substance: METAMIZOLE SODIUM
     Route: 048
     Dates: start: 20210104, end: 20210109
  21. TRASTUZUMAB. [Suspect]
     Active Substance: TRASTUZUMAB
     Indication: BREAST CANCER
     Dosage: 336 MG
     Route: 041
     Dates: start: 20201210, end: 20210328
  22. ZOLEDRONIC ACID [Suspect]
     Active Substance: ZOLEDRONIC ACID
     Indication: METASTASES TO BONE
     Dosage: EVERY 4 WEEKS
     Route: 065
     Dates: start: 20201118
  23. DEXAMETHASONE. [Concomitant]
     Active Substance: DEXAMETHASONE
     Dosage: 8 MG
     Route: 042
     Dates: start: 20201118, end: 20210104
  24. OMEPRAZOLE. [Concomitant]
     Active Substance: OMEPRAZOLE
     Route: 048
     Dates: start: 20210104, end: 20210109
  25. ELIQUIS [Concomitant]
     Active Substance: APIXABAN
     Dosage: 5 MG
     Route: 048
  26. BEPANTHEN AUGEN? UND NASENSALBE [Concomitant]
     Dosage: UNK
     Route: 061
     Dates: start: 20210622

REACTIONS (9)
  - Atrial fibrillation [Recovered/Resolved]
  - Dry skin [Not Recovered/Not Resolved]
  - Left ventricular dysfunction [Not Recovered/Not Resolved]
  - Anaemia [Recovered/Resolved]
  - Back pain [Not Recovered/Not Resolved]
  - Dysgeusia [Recovered/Resolved]
  - Abdominal pain upper [Recovered/Resolved]
  - Vulvovaginal dryness [Recovered/Resolved]
  - Osteochondrosis [Not Recovered/Not Resolved]

NARRATIVE: CASE EVENT DATE: 20201217
